FAERS Safety Report 16862625 (Version 1)
Quarter: 2019Q3

REPORT INFORMATION
  Report Type: Other
  Country: None (occurrence: CN)
  Receive Date: 20190927
  Receipt Date: 20190927
  Transmission Date: 20191005
  Serious: Yes (Life-Threatening, Other)
  Sender: FDA-Public Use
  Company Number: CN-JIANGSU HENGRUI MEDICINE CO., LTD.-2074983

PATIENT
  Age: 68 Year
  Sex: Male
  Weight: 77 kg

DRUGS (1)
  1. DOCETAXEL INJECTION USP, 20 MG/1 ML, 80 MG/4 ML, AND 160 MG/8 ML (20 M [Suspect]
     Active Substance: DOCETAXEL
     Indication: PROSTATE CANCER
     Route: 042
     Dates: start: 20190726, end: 20190726

REACTIONS (1)
  - Total bile acids increased [Recovering/Resolving]

NARRATIVE: CASE EVENT DATE: 20190801
